FAERS Safety Report 15330457 (Version 2)
Quarter: 2018Q4

REPORT INFORMATION
  Report Type: Report from Study
  Country: IT (occurrence: IT)
  Receive Date: 20180829
  Receipt Date: 20181004
  Transmission Date: 20190204
  Serious: Yes (Other)
  Sender: FDA-Public Use
  Company Number: IT-PFIZER INC-2018345566

PATIENT
  Age: 59 Year
  Sex: Female

DRUGS (5)
  1. CARBOPLATINO PFIZER ITALIA [Suspect]
     Active Substance: CARBOPLATIN
     Indication: OVARIAN EPITHELIAL CANCER
     Dosage: 165 MG, CYCLIC
     Route: 041
     Dates: start: 20180504
  2. OMEPRAZOLE. [Concomitant]
     Active Substance: OMEPRAZOLE
     Dosage: 20 MG, UNK
     Route: 048
  3. KYTRIL [Concomitant]
     Active Substance: GRANISETRON HYDROCHLORIDE
     Dosage: 1.5 MG, UNK
     Route: 041
     Dates: start: 20180504
  4. TRIMETON [CHLORPHENAMINE MALEATE] [Concomitant]
     Dosage: 10 MG, UNK
     Route: 041
     Dates: start: 20180504
  5. PACLITAXEL KABI [Suspect]
     Active Substance: PACLITAXEL
     Indication: OVARIAN EPITHELIAL CANCER
     Dosage: 65 MG, CYCLIC
     Route: 041
     Dates: start: 20180504

REACTIONS (1)
  - Paraesthesia [Recovered/Resolved]

NARRATIVE: CASE EVENT DATE: 20180612
